FAERS Safety Report 5241273-5 (Version None)
Quarter: 2007Q1

REPORT INFORMATION
  Report Type: 
  Country: None (occurrence: None)
  Receive Date: 20070215
  Receipt Date: 20070215
  Transmission Date: 20070707
  Serious: Yes (Other)
  Sender: FDA-Public Use
  Company Number: None

PATIENT
  Sex: Male

DRUGS (1)
  1. CORICIDIN [Suspect]
     Indication: DRUG USE FOR UNKNOWN INDICATION
     Dosage: 32 DF; UNK; PO
     Route: 048
     Dates: start: 20060203, end: 20060203

REACTIONS (4)
  - BIPOLAR DISORDER [None]
  - HOMICIDE [None]
  - MENTAL DISORDER [None]
  - OVERDOSE [None]
